FAERS Safety Report 6924343-2 (Version None)
Quarter: 2010Q3

REPORT INFORMATION
  Report Type: 
  Country: None (occurrence: None)
  Receive Date: 20100811
  Receipt Date: 20100811
  Transmission Date: 20110219
  Serious: No
  Sender: FDA-Public Use
  Company Number: None

PATIENT
  Age: 22 Year
  Sex: Male
  Weight: 68.7653 kg

DRUGS (1)
  1. AUGMENTIN '875' [Suspect]
     Indication: TONSILLITIS STREPTOCOCCAL
     Dosage: 1 TABLET BID PO
     Route: 048

REACTIONS (1)
  - RASH [None]
